FAERS Safety Report 10439173 (Version 1)
Quarter: 2014Q3

REPORT INFORMATION
  Report Type: Spontaneous
  Country: CO (occurrence: None)
  Receive Date: 20140904
  Receipt Date: 20140904
  Transmission Date: 20150326
  Serious: Yes (Hospitalization)
  Sender: FDA-Public Use
  Company Number: 2014SA112459

PATIENT
  Age: 75 Year
  Sex: Male

DRUGS (2)
  1. APIDRA [Suspect]
     Active Substance: INSULIN GLULISINE
     Indication: DIABETES MELLITUS
     Dosage: 7 UNITS
     Route: 058
     Dates: start: 2010, end: 201408
  2. LANTUS [Suspect]
     Active Substance: INSULIN GLARGINE
     Indication: DIABETES MELLITUS
     Dosage: 67 UNITS
     Route: 058
     Dates: start: 2010

REACTIONS (3)
  - Hypoglycaemia [None]
  - Urinary tract infection [None]
  - Klebsiella test positive [None]

NARRATIVE: CASE EVENT DATE: 20140808
